FAERS Safety Report 4560332-3 (Version None)
Quarter: 2005Q1

REPORT INFORMATION
  Report Type: 
  Country: None (occurrence: None)
  Receive Date: 20050125
  Receipt Date: 20050114
  Transmission Date: 20050727
  Serious: Yes (Other)
  Sender: FDA-Public Use
  Company Number: GB-JNJFOC-20040302142

PATIENT
  Sex: Female

DRUGS (2)
  1. TOPAMAX [Suspect]
     Indication: EPILEPSY
     Route: 049
  2. EPILIM [Concomitant]
     Indication: EPILEPSY
     Route: 065

REACTIONS (2)
  - AMENORRHOEA [None]
  - OVARIAN FAILURE [None]
